FAERS Safety Report 6030919-X (Version None)
Quarter: 2009Q1

REPORT INFORMATION
  Report Type: 
  Country: None (occurrence: None)
  Receive Date: 20090106
  Receipt Date: 20081222
  Transmission Date: 20090719
  Serious: Yes (Other)
  Sender: FDA-Public Use
  Company Number: CHPA2008US23260

PATIENT
  Age: 5 Year
  Sex: Female
  Weight: 19.5 kg

DRUGS (1)
  1. TRIAMINIC THIN STRIPS-LONG ACTING COUGH (NCH)(DEXTROMETHORPHAN HYDROBR [Suspect]
     Indication: COUGH
     Dosage: 5.5 MG, ONCE/SINGLE, ORAL
     Route: 048
     Dates: start: 20081222, end: 20081222

REACTIONS (1)
  - BLOOD GLUCOSE INCREASED [None]
